FAERS Safety Report 17455378 (Version 1)
Quarter: 2020Q1

REPORT INFORMATION
  Report Type: Spontaneous
  Country: US (occurrence: US)
  Receive Date: 20200225
  Receipt Date: 20200225
  Transmission Date: 20200409
  Serious: Yes (Death, Other)
  Sender: FDA-Public Use
  Company Number: US-AMGEN-USASP2020027486

PATIENT

DRUGS (1)
  1. BLINATUMOMAB [Suspect]
     Active Substance: BLINATUMOMAB
     Indication: B PRECURSOR TYPE ACUTE LEUKAEMIA
     Dosage: UNK, CYCLICAL
     Route: 065

REACTIONS (20)
  - Acute graft versus host disease [Fatal]
  - Bacillus bacteraemia [Unknown]
  - Cytomegalovirus infection [Unknown]
  - Human herpesvirus 6 infection [Unknown]
  - Cytokine release syndrome [Unknown]
  - Clostridium difficile infection [Unknown]
  - Pseudomonal bacteraemia [Unknown]
  - Neurotoxicity [Unknown]
  - Staphylococcal bacteraemia [Unknown]
  - Chronic graft versus host disease [Fatal]
  - Central nervous system leukaemia [Fatal]
  - Serratia bacteraemia [Unknown]
  - Adenovirus infection [Unknown]
  - Acute lymphocytic leukaemia recurrent [Fatal]
  - Sepsis [Fatal]
  - Escherichia bacteraemia [Unknown]
  - BK virus infection [Unknown]
  - Fungal infection [Unknown]
  - Klebsiella bacteraemia [Unknown]
  - Enterococcal bacteraemia [Unknown]
